FAERS Safety Report 6359193-1 (Version None)
Quarter: 2009Q3

REPORT INFORMATION
  Report Type: 
  Country: None (occurrence: None)
  Receive Date: 20090917
  Receipt Date: 20090910
  Transmission Date: 20100115
  Serious: Yes (Other)
  Sender: FDA-Public Use
  Company Number: US-JNJFOC-20090904332

PATIENT
  Sex: Male
  Weight: 73.94 kg

DRUGS (3)
  1. DURAGESIC-100 [Suspect]
     Indication: MYALGIA
     Route: 062
  2. LORTAB [Concomitant]
     Indication: PAIN
     Route: 048
  3. SOMA [Concomitant]
     Indication: MYALGIA
     Dosage: AS NEEDED
     Route: 048

REACTIONS (7)
  - DRUG INEFFECTIVE [None]
  - EAR DISCOMFORT [None]
  - INCORRECT DOSE ADMINISTERED [None]
  - INJECTION SITE INFECTION [None]
  - NASAL CONGESTION [None]
  - PAIN [None]
  - TREATMENT NONCOMPLIANCE [None]
